FAERS Safety Report 5429069-2 (Version None)
Quarter: 2007Q3

REPORT INFORMATION
  Report Type: 
  Country: None (occurrence: None)
  Receive Date: 20070827
  Receipt Date: 20070820
  Transmission Date: 20080115
  Serious: Yes (Other)
  Sender: FDA-Public Use
  Company Number: 2007SP016793

PATIENT
  Age: 57 Year
  Sex: Female

DRUGS (2)
  1. INTRON A [Suspect]
     Indication: HEPATITIS C
     Dosage: 1 MG/KG
     Dates: start: 20061001, end: 20070401
  2. REBETOL [Suspect]
     Indication: HEPATITIS C
     Dosage: 400 MG; BID
     Dates: start: 20061001, end: 20070401

REACTIONS (2)
  - IRIDOCYCLITIS [None]
  - UVEITIS [None]
